FAERS Safety Report 23746895 (Version 2)
Quarter: 2024Q2

REPORT INFORMATION
  Report Type: Other
  Country: US (occurrence: None)
  Receive Date: 20240416
  Receipt Date: 20240513
  Transmission Date: 20240716
  Serious: Yes (Hospitalization, Other)
  Sender: FDA-Public Use
  Company Number: US-ROCHE-3540445

PATIENT
  Sex: Female

DRUGS (1)
  1. OCREVUS [Suspect]
     Active Substance: OCRELIZUMAB
     Indication: Product used for unknown indication
     Dosage: INFUSION RECEIVED ON 12/MAR/2024
     Route: 042

REACTIONS (5)
  - Chest pain [Recovered/Resolved]
  - Syncope [Recovered/Resolved]
  - COVID-19 [Recovered/Resolved]
  - Ataxia [Unknown]
  - Hemiparesis [Unknown]

NARRATIVE: CASE EVENT DATE: 20240120
